FAERS Safety Report 26182030 (Version 2)
Quarter: 2025Q4

REPORT INFORMATION
  Report Type: Report from Study
  Country: CA (occurrence: CA)
  Receive Date: 20251221
  Receipt Date: 20251224
  Transmission Date: 20260118
  Serious: Yes (Hospitalization)
  Sender: ALEXION PHARMACEUTICALS
  Company Number: CA-AstraZeneca-CH-01016451A

PATIENT
  Age: 41 Year
  Sex: Female

DRUGS (2)
  1. ANIFROLUMAB [Suspect]
     Active Substance: ANIFROLUMAB
     Indication: Systemic lupus erythematosus
     Dates: start: 20250401
  2. ANIFROLUMAB [Suspect]
     Active Substance: ANIFROLUMAB
     Indication: Autoantibody positive

REACTIONS (6)
  - Sepsis [Unknown]
  - Endocarditis [Unknown]
  - Pneumonia [Unknown]
  - Proteinuria [Unknown]
  - Septic embolus [Unknown]
  - Influenza [Unknown]

NARRATIVE: CASE EVENT DATE: 20251210
